FAERS Safety Report 13044004 (Version 1)
Quarter: 2016Q4

REPORT INFORMATION
  Report Type: Spontaneous
  Country: US (occurrence: US)
  Receive Date: 20161220
  Receipt Date: 20161220
  Transmission Date: 20170207
  Serious: No
  Sender: FDA-Public Use
  Company Number: US-ROCHE-1015119

PATIENT
  Sex: Male

DRUGS (1)
  1. ZELBORAF [Suspect]
     Active Substance: VEMURAFENIB
     Indication: MALIGNANT MELANOMA
     Route: 065

REACTIONS (7)
  - Lip dry [Unknown]
  - Stomatitis [Unknown]
  - Unevaluable event [Unknown]
  - Arthralgia [Unknown]
  - Ill-defined disorder [Unknown]
  - Pain [Unknown]
  - Hyperkeratosis [Unknown]
